FAERS Safety Report 5217101-0 (Version None)
Quarter: 2007Q1

REPORT INFORMATION
  Report Type: 
  Country: None (occurrence: None)
  Receive Date: 20070119
  Receipt Date: 20070110
  Transmission Date: 20070707
  Serious: No
  Sender: FDA-Public Use
  Company Number: CHNY2006AU03480

PATIENT
  Age: 41 Year
  Sex: Female

DRUGS (1)
  1. NICOTINE [Suspect]
     Indication: SMOKING CESSATION THERAPY
     Dosage: 6-7 PIECES 4 MG, QD, CHEWED
     Dates: start: 20061216, end: 20061220

REACTIONS (15)
  - ANXIETY [None]
  - CHEST DISCOMFORT [None]
  - CHEST PAIN [None]
  - DRUG HYPERSENSITIVITY [None]
  - DYSPEPSIA [None]
  - DYSPNOEA [None]
  - LARYNGEAL DISORDER [None]
  - MUCOUS MEMBRANE DISORDER [None]
  - ODYNOPHAGIA [None]
  - OESOPHAGEAL DISORDER [None]
  - OESOPHAGEAL PERFORATION [None]
  - PHARYNGEAL OEDEMA [None]
  - PSYCHOSOMATIC DISEASE [None]
  - RASH [None]
  - REFLUX OESOPHAGITIS [None]
